FAERS Safety Report 24764093 (Version 1)
Quarter: 2024Q4

REPORT INFORMATION
  Report Type: Spontaneous
  Country: JP (occurrence: JP)
  Receive Date: 20241223
  Receipt Date: 20241223
  Transmission Date: 20250115
  Serious: Yes (Hospitalization, Other)
  Sender: WOCKHARDT LIMITED
  Company Number: JP-WOCKHARDT LIMITED-2024WLD000068

PATIENT
  Age: 87 Year
  Sex: Female
  Weight: 47 kg

DRUGS (1)
  1. CEFTRIAXONE [Suspect]
     Active Substance: CEFTRIAXONE
     Indication: Infection
     Dosage: 2 GRAM, SINGLE
     Route: 065

REACTIONS (2)
  - Encephalopathy [Recovering/Resolving]
  - Rectal ulcer [Unknown]
